FAERS Safety Report 5006872-4 (Version None)
Quarter: 2006Q2

REPORT INFORMATION
  Report Type: 
  Country: None (occurrence: None)
  Receive Date: 20060516
  Receipt Date: 20060503
  Transmission Date: 20061013
  Serious: Yes (Other)
  Sender: FDA-Public Use
  Company Number: HQWYE165204MAY06

PATIENT

DRUGS (2)
  1. TYGACIL [Suspect]
  2. VANCOMYCIN [Concomitant]

REACTIONS (1)
  - KLEBSIELLA BACTERAEMIA [None]
